FAERS Safety Report 24199603 (Version 1)
Quarter: 2024Q3

REPORT INFORMATION
  Report Type: Spontaneous
  Country: US (occurrence: US)
  Receive Date: 20240812
  Receipt Date: 20240812
  Transmission Date: 20241017
  Serious: No
  Sender: PHARMACOSMOS
  Company Number: US-NEBO-664778

PATIENT
  Sex: Female

DRUGS (3)
  1. PROGESTERONE [Concomitant]
     Active Substance: PROGESTERONE
  2. MONOFERRIC [Suspect]
     Active Substance: FERRIC DERISOMALTOSE
     Indication: Product used for unknown indication
     Dates: start: 20240718, end: 20240718
  3. NALTREXONE [Concomitant]
     Active Substance: NALTREXONE

REACTIONS (5)
  - Head discomfort [Recovered/Resolved]
  - Chest pain [Recovered/Resolved]
  - Nausea [Recovered/Resolved]
  - Dyspnoea [Recovered/Resolved]
  - Hypertension [Recovered/Resolved]

NARRATIVE: CASE EVENT DATE: 20240718
